FAERS Safety Report 12791702 (Version 1)
Quarter: 2016Q3

REPORT INFORMATION
  Report Type: Spontaneous
  Country: US (occurrence: US)
  Receive Date: 20160929
  Receipt Date: 20160929
  Transmission Date: 20161109
  Serious: No
  Sender: FDA-Public Use
  Company Number: US-JNJFOC-20160920193

PATIENT
  Age: 64 Year
  Sex: Male
  Weight: 83.92 kg

DRUGS (1)
  1. TRAMADOL HYDROCHLORIDE. [Suspect]
     Active Substance: TRAMADOL HYDROCHLORIDE
     Indication: PAIN MANAGEMENT
     Dosage: 1 TO 2 2 TIMES A DAY AS NECESSARY.
     Route: 048
     Dates: start: 2012, end: 20160906

REACTIONS (1)
  - Sleep disorder [Unknown]

NARRATIVE: CASE EVENT DATE: 20160903
